FAERS Safety Report 6386309-3 (Version None)
Quarter: 2009Q4

REPORT INFORMATION
  Report Type: 
  Country: None (occurrence: None)
  Receive Date: 20091002
  Receipt Date: 20090915
  Transmission Date: 20100525
  Serious: Yes (Other)
  Sender: FDA-Public Use
  Company Number: CA-PFIZER INC-2009269610

PATIENT

DRUGS (6)
  1. ZELDOX [Suspect]
     Indication: SCHIZOPHRENIA
     Dosage: 40 MG, 2X/DAY
     Dates: start: 20090701
  2. RISPERDAL [Suspect]
     Indication: SCHIZOPHRENIA
     Dosage: 4 MG, 1X/DAY
  3. CELEXA [Concomitant]
     Dosage: UNK
  4. ADVAIR DISKUS 100/50 [Concomitant]
     Dosage: UNK
  5. KEMADRIN [Concomitant]
     Dosage: UNK
  6. VENTOLIN [Concomitant]
     Dosage: UNK

REACTIONS (7)
  - CHRONIC OBSTRUCTIVE PULMONARY DISEASE [None]
  - FOOD CRAVING [None]
  - HALLUCINATION [None]
  - POLLAKIURIA [None]
  - SCHIZOPHRENIA [None]
  - SOMNOLENCE [None]
  - WEIGHT INCREASED [None]
